FAERS Safety Report 7479277-4 (Version None)
Quarter: 2011Q2

REPORT INFORMATION
  Report Type: 
  Country: None (occurrence: None)
  Receive Date: 20110513
  Receipt Date: 20110503
  Transmission Date: 20111010
  Serious: Yes (Hospitalization)
  Sender: FDA-Public Use
  Company Number: FR-JNJFOC-20110505080

PATIENT
  Sex: Female

DRUGS (1)
  1. ACETAMINOPHEN AND TRAMADOL HCL [Suspect]
     Indication: PRODUCT USED FOR UNKNOWN INDICATION
     Dosage: 750/6500 MG, ONCE, 20 TABLETS
     Route: 048

REACTIONS (3)
  - INTENTIONAL OVERDOSE [None]
  - FEELING DRUNK [None]
  - SOMNOLENCE [None]
